FAERS Safety Report 8898669 (Version 2)
Quarter: 2013Q1

REPORT INFORMATION
  Report Type: Spontaneous
  Country: US (occurrence: US)
  Receive Date: 20121109
  Receipt Date: 20130110
  Transmission Date: 20140127
  Serious: Yes (Life-Threatening, Hospitalization)
  Sender: FDA-Public Use
  Company Number: US-BAYER-2012-115851

PATIENT
  Age: 31 Year
  Sex: Female
  Weight: 63.49 kg

DRUGS (6)
  1. YASMIN [Suspect]
     Dosage: UNK
     Dates: start: 1999, end: 2009
  2. OCELLA [Suspect]
     Dosage: UNK
     Dates: start: 1999, end: 2009
  3. SINGULAIR [Concomitant]
     Indication: MULTIPLE ALLERGIES
     Dosage: UNK
     Dates: start: 200705
  4. URSODIOL [Concomitant]
     Indication: LIVER DISORDER
     Dosage: UNK
     Dates: start: 199910
  5. OMEPRAZOL [Concomitant]
     Indication: LIVER DISORDER
     Dosage: UNK
     Dates: start: 199910
  6. ATENOLOL [Concomitant]
     Indication: MIGRAINE
     Dosage: UNK
     Dates: start: 199910

REACTIONS (14)
  - Cholelithiasis [None]
  - Emotional distress [None]
  - Injury [None]
  - Pain [None]
  - General physical health deterioration [None]
  - Anxiety [None]
  - Anhedonia [None]
  - Pain [None]
  - Liver disorder [None]
  - Gastric disorder [None]
  - Eating disorder [None]
  - Depression [None]
  - Panic attack [None]
  - Hepatic failure [None]
